FAERS Safety Report 10365867 (Version 1)
Quarter: 2014Q1

REPORT INFORMATION
  Report Type: Spontaneous
  Country: US (occurrence: None)
  Receive Date: 20140306
  Receipt Date: 20140306
  Transmission Date: 20141002
  Serious: Yes (Other)
  Sender: FDA-Public Use
  Company Number: 163-21880-13030324

PATIENT
  Age: 74 Year
  Sex: Male

DRUGS (8)
  1. REVLIMID (LENALIDOMIDE) (15 MILLIGRAM, CAPSULES) [Suspect]
     Indication: PLASMA CELL MYELOMA
     Route: 048
     Dates: start: 20110315
  2. AREDIA (PAMIDRONATE DISODIUM) [Concomitant]
  3. ASPIRIN (ACETYLASLICYLIC ACID) [Concomitant]
  4. FISH OIL (FISH OIL) [Concomitant]
  5. GABAPENTIN (GABAPENTIN) [Concomitant]
  6. LISINOPRIL (LISINORPIL) [Concomitant]
  7. MENS MULTIVITMINS (MULTIVITAMINS) [Concomitant]
  8. VITAMIN D (ERGOCALCIFEROL) [Concomitant]

REACTIONS (1)
  - Thrombosis [None]
